FAERS Safety Report 6150370-1 (Version None)
Quarter: 2009Q2

REPORT INFORMATION
  Report Type: 
  Country: None (occurrence: None)
  Receive Date: 20090408
  Receipt Date: 20090408
  Transmission Date: 20091009
  Serious: Yes (Hospitalization)
  Sender: FDA-Public Use
  Company Number: None

PATIENT
  Age: 78 Year
  Sex: Male
  Weight: 83.2 kg

DRUGS (2)
  1. ATENOLOL [Suspect]
     Indication: HYPERTENSION
     Dosage: 50MG EVERYDAY PO
     Route: 048
     Dates: start: 19950313, end: 20090330
  2. NIFEDIPINE [Suspect]
     Indication: HYPERTENSION
     Dosage: 120MG EVERYDAY PO
     Route: 048
     Dates: start: 19980617, end: 20090330

REACTIONS (3)
  - BRADYCARDIA [None]
  - HYPOTENSION [None]
  - SYNCOPE [None]
